FAERS Safety Report 5455480-X (Version None)
Quarter: 2007Q3

REPORT INFORMATION
  Report Type: 
  Country: None (occurrence: None)
  Receive Date: 20070918
  Receipt Date: 20070228
  Transmission Date: 20080115
  Serious: No
  Sender: FDA-Public Use
  Company Number: US-ASTRAZENECA-2006UW21401

PATIENT
  Age: 56 Year
  Sex: Male
  Weight: 92.7 kg

DRUGS (4)
  1. SEROQUEL [Suspect]
     Indication: ANGER
     Route: 048
     Dates: start: 20000101, end: 20020101
  2. WELLBUTRIN [Concomitant]
  3. ZOLOFT [Concomitant]
  4. XANAX [Concomitant]

REACTIONS (5)
  - ADVERSE EVENT [None]
  - BLOOD CHOLESTEROL INCREASED [None]
  - BLOOD TRIGLYCERIDES INCREASED [None]
  - DIABETES MELLITUS [None]
  - OBESITY [None]
